FAERS Safety Report 20501769 (Version 4)
Quarter: 2022Q3

REPORT INFORMATION
  Report Type: Report from Study
  Country: US (occurrence: US)
  Receive Date: 20220222
  Receipt Date: 20220831
  Transmission Date: 20221026
  Serious: Yes (Other)
  Sender: FDA-Public Use
  Company Number: US-BIOVITRUM-2021US11131

PATIENT
  Age: 13 Year
  Sex: Female

DRUGS (6)
  1. KINERET [Suspect]
     Active Substance: ANAKINRA
     Indication: Still^s disease
  2. KINERET [Suspect]
     Active Substance: ANAKINRA
     Indication: Pericarditis
     Dates: start: 202001
  3. KINERET [Suspect]
     Active Substance: ANAKINRA
     Indication: Juvenile idiopathic arthritis
     Dates: start: 202001
  4. KINERET [Suspect]
     Active Substance: ANAKINRA
     Dates: start: 202001
  5. KINERET [Suspect]
     Active Substance: ANAKINRA
     Dates: start: 20200108
  6. KINERET [Suspect]
     Active Substance: ANAKINRA
     Dates: start: 20200108

REACTIONS (9)
  - Still^s disease [Unknown]
  - Condition aggravated [Unknown]
  - Memory impairment [Unknown]
  - COVID-19 [Recovered/Resolved]
  - Vitamin D decreased [Unknown]
  - Fatigue [Unknown]
  - Injection site bruising [Unknown]
  - Injection site reaction [Unknown]
  - Off label use [Unknown]

NARRATIVE: CASE EVENT DATE: 20200101
